FAERS Safety Report 5025690-4 (Version None)
Quarter: 2006Q2

REPORT INFORMATION
  Report Type: 
  Country: None (occurrence: None)
  Receive Date: 20060427
  Receipt Date: 20050603
  Transmission Date: 20061013
  Serious: Yes (Disabling)
  Sender: FDA-Public Use
  Company Number: 2005075774

PATIENT
  Age: 73 Year
  Sex: Male
  Weight: 80.2867 kg

DRUGS (10)
  1. ZITHROMAX [Suspect]
     Indication: PHARYNGITIS
     Dosage: 500 MG (250 MG), ORAL; SEE IMAGE
     Route: 048
     Dates: start: 20050301, end: 20050301
  2. ZITHROMAX [Suspect]
     Indication: SINUSITIS
     Dosage: 500 MG (250 MG), ORAL; SEE IMAGE
     Route: 048
     Dates: start: 20050301, end: 20050301
  3. ZITHROMAX [Suspect]
     Indication: PHARYNGITIS
     Dosage: 500 MG (250 MG), ORAL; SEE IMAGE
     Route: 048
     Dates: start: 20050302, end: 20050306
  4. ZITHROMAX [Suspect]
     Indication: SINUSITIS
     Dosage: 500 MG (250 MG), ORAL; SEE IMAGE
     Route: 048
     Dates: start: 20050302, end: 20050306
  5. TOPROL-XL [Concomitant]
  6. PRAVACHOL [Concomitant]
  7. PLAVIX [Concomitant]
  8. ALLERX (CHLORPHENAMINE HYOSCINE METHOBROMIDE, PSEUDOEPHEDRINE) [Concomitant]
  9. HISTUSSIN HC (CHLORPHENAMINE MALEATE, HYDROCODONE BITARTRATE, PHENYLEP [Concomitant]
  10. TESSALON (BEZONATATE) [Concomitant]

REACTIONS (1)
  - DEAFNESS [None]
